FAERS Safety Report 14687900 (Version 1)
Quarter: 2018Q1

REPORT INFORMATION
  Report Type: Spontaneous
  Country: IE (occurrence: IE)
  Receive Date: 20180328
  Receipt Date: 20180328
  Transmission Date: 20180509
  Serious: Yes (Hospitalization, Congenital Anomaly, Other)
  Sender: FDA-Public Use
  Company Number: IE-AUROBINDO-AUR-APL-2018-012741

PATIENT
  Sex: Male
  Weight: 1.28 kg

DRUGS (10)
  1. ELTROXIN [Concomitant]
     Active Substance: LEVOTHYROXINE
     Dosage: ()
     Route: 063
  2. LANTUS [Suspect]
     Active Substance: INSULIN GLARGINE
     Indication: PRODUCT USED FOR UNKNOWN INDICATION
     Dosage: DOSE:19 UNIT(S) ()
     Route: 064
     Dates: start: 20160501
  3. NOVORAPID [Suspect]
     Active Substance: INSULIN ASPART
     Indication: PRODUCT USED FOR UNKNOWN INDICATION
     Dosage: ()
     Route: 064
     Dates: start: 20160501, end: 20170204
  4. FOLIC ACID. [Concomitant]
     Active Substance: FOLIC ACID
     Dosage: ()
     Route: 064
     Dates: start: 20160501, end: 20170204
  5. LANTUS [Suspect]
     Active Substance: INSULIN GLARGINE
     Route: 063
     Dates: start: 20170204
  6. ELTROXIN [Concomitant]
     Active Substance: LEVOTHYROXINE
     Indication: PRODUCT USED FOR UNKNOWN INDICATION
     Dosage: ()
     Route: 064
     Dates: start: 20160501, end: 20170204
  7. LANTUS [Suspect]
     Active Substance: INSULIN GLARGINE
     Dosage: 32 INTERNATIONAL UNIT
     Route: 064
     Dates: end: 20170204
  8. NOVORAPID [Suspect]
     Active Substance: INSULIN ASPART
     Dosage: ()
     Route: 063
     Dates: start: 20170204
  9. METFORMIN [Suspect]
     Active Substance: METFORMIN HYDROCHLORIDE
     Indication: PRODUCT USED FOR UNKNOWN INDICATION
     Route: 063
  10. FOLIC ACID. [Concomitant]
     Active Substance: FOLIC ACID
     Indication: PRODUCT USED FOR UNKNOWN INDICATION
     Dosage: ()
     Route: 063

REACTIONS (5)
  - Hypoglycaemia neonatal [Recovered/Resolved]
  - Foetal exposure during pregnancy [Unknown]
  - Exposure via breast milk [Unknown]
  - Convulsion neonatal [Recovered/Resolved]
  - Ankyloglossia congenital [Recovered/Resolved]

NARRATIVE: CASE EVENT DATE: 20160501
